FAERS Safety Report 9796598 (Version 2)
Quarter: 2015Q4

REPORT INFORMATION
  Report Type: Spontaneous
  Country: JP (occurrence: JP)
  Receive Date: 20140103
  Receipt Date: 20151126
  Transmission Date: 20160305
  Serious: Yes (Hospitalization, Other)
  Sender: FDA-Public Use
  Company Number: JP-BRISTOL-MYERS SQUIBB COMPANY-19951359

PATIENT
  Age: 23 Year
  Sex: Female

DRUGS (6)
  1. CISPLATIN. [Suspect]
     Active Substance: CISPLATIN
     Indication: METASTASES TO LUNG
     Dosage: UNK
     Route: 065
     Dates: start: 200310
  2. DOXORUBICIN [Suspect]
     Active Substance: DOXORUBICIN
     Indication: OSTEOSARCOMA
     Dosage: UNK
     Route: 065
     Dates: start: 200310
  3. IFOSFAMIDE. [Suspect]
     Active Substance: IFOSFAMIDE
     Indication: OSTEOSARCOMA
     Dosage: UNK
     Route: 065
     Dates: start: 200310
  4. ETOPOSIDE. [Suspect]
     Active Substance: ETOPOSIDE
     Indication: METASTASES TO LUNG
     Dosage: UNK
     Route: 065
     Dates: start: 200310
  5. CARBOPLATIN. [Suspect]
     Active Substance: CARBOPLATIN
     Indication: METASTASES TO LUNG
     Dosage: UNK
     Route: 065
  6. GEMZAR [Suspect]
     Active Substance: GEMCITABINE HYDROCHLORIDE
     Indication: METASTASES TO LUNG
     Route: 065

REACTIONS (2)
  - Papillary thyroid cancer [Unknown]
  - Off label use [Unknown]

NARRATIVE: CASE EVENT DATE: 200908
